FAERS Safety Report 9888092 (Version 1)
Quarter: 2014Q1

REPORT INFORMATION
  Report Type: Spontaneous
  Country: NO (occurrence: NO)
  Receive Date: 20140211
  Receipt Date: 20140211
  Transmission Date: 20141002
  Serious: Yes (Life-Threatening)
  Sender: FDA-Public Use
  Company Number: NO-ACTAVIS-2014-02110

PATIENT
  Age: 87 Year
  Sex: Female

DRUGS (2)
  1. PACLITAXEL (UNKNOWN) [Suspect]
     Indication: OVARIAN CANCER
     Dosage: UNK
     Route: 042
     Dates: start: 20140114, end: 20140114
  2. AVASTIN                            /01555201/ [Concomitant]
     Indication: OVARIAN CANCER
     Dosage: UNK
     Route: 065
     Dates: start: 201401

REACTIONS (1)
  - Hypersensitivity [Unknown]
